FAERS Safety Report 21744819 (Version 1)
Quarter: 2022Q4

REPORT INFORMATION
  Report Type: Spontaneous
  Country: TW (occurrence: TW)
  Receive Date: 20221219
  Receipt Date: 20221219
  Transmission Date: 20230113
  Serious: Yes (Other)
  Sender: FDA-Public Use
  Company Number: TW-KYOWAKIRIN-2022AKK019372

PATIENT
  Age: 54 Year
  Sex: Female

DRUGS (2)
  1. FILGRASTIM [Suspect]
     Active Substance: FILGRASTIM
     Indication: Pneumonia pneumococcal
     Dosage: UNK
     Route: 065
  2. PEGFILGRASTIM [Suspect]
     Active Substance: PEGFILGRASTIM
     Indication: Pneumonia pneumococcal
     Dosage: UNK
     Route: 065

REACTIONS (1)
  - Immune recovery uveitis [Unknown]
